FAERS Safety Report 7911793-0 (Version None)
Quarter: 2011Q4

REPORT INFORMATION
  Report Type: 
  Country: None (occurrence: None)
  Receive Date: 20111114
  Receipt Date: 20111114
  Transmission Date: 20120403
  Serious: Yes (Other)
  Sender: FDA-Public Use
  Company Number: None

PATIENT
  Age: 39 Year
  Sex: Male
  Weight: 86.182 kg

DRUGS (2)
  1. PRISTIQ [Suspect]
     Indication: DEPRESSION
     Dosage: 50 MG
  2. PRISTIQ [Suspect]
     Indication: ANXIETY
     Dosage: 50 MG

REACTIONS (4)
  - FALL [None]
  - MUSCULOSKELETAL STIFFNESS [None]
  - VERTIGO [None]
  - DISTURBANCE IN ATTENTION [None]
